FAERS Safety Report 23160602 (Version 4)
Quarter: 2024Q3

REPORT INFORMATION
  Report Type: Report from Study
  Country: JP (occurrence: JP)
  Receive Date: 20231108
  Receipt Date: 20240731
  Transmission Date: 20241016
  Serious: Yes (Hospitalization, Disabling, Other)
  Sender: ALEXION PHARMACEUTICALS
  Company Number: JP-ALXN-A201602606AA

PATIENT
  Age: 5 Year
  Sex: Male

DRUGS (9)
  1. STRENSIQ [Suspect]
     Active Substance: ASFOTASE ALFA
     Indication: Hypophosphatasia
     Dosage: 2 MILLIGRAM/KILOGRAM, TIW
     Route: 058
     Dates: start: 20160328, end: 20170403
  2. STRENSIQ [Suspect]
     Active Substance: ASFOTASE ALFA
     Dosage: 2 MG/KG, BIW
     Route: 058
     Dates: start: 20170404, end: 20220719
  3. STRENSIQ [Suspect]
     Active Substance: ASFOTASE ALFA
     Dosage: 2 MILLIGRAM/KILOGRAM, TIW
     Route: 058
     Dates: start: 20220720
  4. GLYCOSAMINOGLYCANS [Concomitant]
     Active Substance: GLYCOSAMINOGLYCANS
     Indication: Dry skin
     Dosage: UNK, BID
     Route: 062
     Dates: start: 20160330
  5. CLOBETASONE BUTYRATE [Concomitant]
     Active Substance: CLOBETASONE BUTYRATE
     Indication: Dry skin
     Dosage: UNK, BID
     Route: 062
     Dates: start: 20160330, end: 20180331
  6. CLOBETASONE BUTYRATE [Concomitant]
     Active Substance: CLOBETASONE BUTYRATE
     Dosage: UNK, 1-2TIMES/DAY
     Route: 062
     Dates: start: 20220720
  7. EMLA [Concomitant]
     Active Substance: LIDOCAINE\PRILOCAINE
     Indication: Injection site pain
     Dosage: 1 DF, QD
     Route: 062
     Dates: start: 20161209
  8. EMLA [Concomitant]
     Active Substance: LIDOCAINE\PRILOCAINE
     Indication: Injection site erythema
  9. EMLA [Concomitant]
     Active Substance: LIDOCAINE\PRILOCAINE
     Indication: Prophylaxis

REACTIONS (13)
  - Pyrexia [Recovered/Resolved]
  - Fracture delayed union [Unknown]
  - Fall [Unknown]
  - Clavicle fracture [Recovered/Resolved]
  - Face injury [Not Recovered/Not Resolved]
  - Tooth loss [Not Recovered/Not Resolved]
  - Tooth dislocation [Not Recovered/Not Resolved]
  - Cortisol decreased [Unknown]
  - Dyslalia [Recovered/Resolved]
  - Anal inflammation [Recovered/Resolved]
  - Injection site erythema [Recovering/Resolving]
  - Injection site discolouration [Not Recovered/Not Resolved]
  - Injection site pain [Recovered/Resolved]

NARRATIVE: CASE EVENT DATE: 20160328
